FAERS Safety Report 6868019-9 (Version None)
Quarter: 2010Q3

REPORT INFORMATION
  Report Type: 
  Country: None (occurrence: None)
  Receive Date: 20100722
  Receipt Date: 20080509
  Transmission Date: 20110219
  Serious: No
  Sender: FDA-Public Use
  Company Number: US-PFIZER INC-2008040868

PATIENT
  Sex: Female
  Weight: 103.63 kg

DRUGS (2)
  1. CHANTIX [Suspect]
     Indication: SMOKING CESSATION THERAPY
     Dates: start: 20080504
  2. DRUG, UNSPECIFIED [Concomitant]

REACTIONS (6)
  - AFFECTIVE DISORDER [None]
  - ANXIETY [None]
  - EMOTIONAL DISORDER [None]
  - NERVOUSNESS [None]
  - PREMENSTRUAL SYNDROME [None]
  - RESTLESSNESS [None]
